FAERS Safety Report 25406674 (Version 1)
Quarter: 2025Q2

REPORT INFORMATION
  Report Type: Report from Study
  Country: GB (occurrence: GB)
  Receive Date: 20250606
  Receipt Date: 20250606
  Transmission Date: 20250717
  Serious: Yes (Other)
  Sender: FRESENIUS KABI
  Company Number: GB-FreseniusKabi-FK202507852

PATIENT
  Age: 68 Year
  Sex: Male

DRUGS (1)
  1. TYENNE [Suspect]
     Active Substance: TOCILIZUMAB-AAZG
     Indication: Rheumatoid arthritis
     Dosage: TYENNE 162MG/0.9ML SOLUTION FOR INJECTION PRE-FILLED PENS (FRESENIUS KABI LTD) 4 PRE-FILLED DISPOSAB
     Route: 058
     Dates: start: 20250603

REACTIONS (1)
  - Anaphylactic reaction [Recovered/Resolved]

NARRATIVE: CASE EVENT DATE: 20250603
